FAERS Safety Report 13146905 (Version 2)
Quarter: 2017Q1

REPORT INFORMATION
  Report Type: Report from Study
  Country: US (occurrence: US)
  Receive Date: 20170124
  Receipt Date: 20170124
  Transmission Date: 20170428
  Serious: No
  Sender: FDA-Public Use
  Company Number: US-AMGEN-USASL2016155615

PATIENT
  Age: 68 Year
  Sex: Female

DRUGS (6)
  1. CLONIDINE. [Concomitant]
     Active Substance: CLONIDINE
     Dosage: UNK UNK, TID
  2. LASIX [Concomitant]
     Active Substance: FUROSEMIDE
  3. BABY ASPIRIN [Concomitant]
     Active Substance: ASPIRIN
  4. XARELTO [Concomitant]
     Active Substance: RIVAROXABAN
  5. REPATHA [Suspect]
     Active Substance: EVOLOCUMAB
     Indication: HYPERCHOLESTEROLAEMIA
     Dosage: 420 MG, QMO
     Route: 065
  6. POTASSIUM [Concomitant]
     Active Substance: POTASSIUM

REACTIONS (7)
  - Rhinorrhoea [Recovered/Resolved]
  - Fatigue [Unknown]
  - Injection site erythema [Recovered/Resolved]
  - Injection site pain [Unknown]
  - Epistaxis [Recovered/Resolved]
  - Blood pressure systolic increased [Unknown]
  - Back pain [Recovered/Resolved]
